FAERS Safety Report 14682034 (Version 2)
Quarter: 2018Q1

REPORT INFORMATION
  Report Type: Spontaneous
  Country: US (occurrence: US)
  Receive Date: 20180326
  Receipt Date: 20180328
  Transmission Date: 20180509
  Serious: No
  Sender: FDA-Public Use
  Company Number: US-PFIZER INC-2017494447

PATIENT
  Age: 13 Year
  Sex: Male
  Weight: 42.18 kg

DRUGS (4)
  1. GENOTROPIN [Suspect]
     Active Substance: SOMATROPIN
     Indication: GROWTH HORMONE DEFICIENCY
     Dosage: 1.4 MG, DAILY (1.4 MG INJECTION 6 DAYS A WEEK, ONE DAY OFF)
  2. PATANASE [Concomitant]
     Active Substance: OLOPATADINE HYDROCHLORIDE
     Indication: SINUS DISORDER
     Dosage: 2 SPRAYS IN EACH NOSTRIL TWICE A DAY
     Route: 045
  3. GENOTROPIN [Suspect]
     Active Substance: SOMATROPIN
     Indication: GROWTH RETARDATION
     Dosage: 1.4 MG, DAILY (TAKES 6 OUT OF 7 DAYS)
     Route: 058
     Dates: start: 2014
  4. ZYRTEC [Concomitant]
     Active Substance: CETIRIZINE HYDROCHLORIDE
     Indication: HYPERSENSITIVITY
     Dosage: 10 MG, 1X/DAY (10 MG TABLET BY MOUTH ONCE AT NIGHT.)

REACTIONS (12)
  - Nasopharyngitis [Unknown]
  - Drug administration error [Unknown]
  - Sinusitis [Recovered/Resolved]
  - Head discomfort [Not Recovered/Not Resolved]
  - Gastrointestinal disorder [Not Recovered/Not Resolved]
  - Anal fissure [Not Recovered/Not Resolved]
  - Tension headache [Unknown]
  - Eye pain [Unknown]
  - Wheezing [Unknown]
  - Sinus congestion [Unknown]
  - Drug dose omission [Unknown]
  - Product storage error [Unknown]

NARRATIVE: CASE EVENT DATE: 2017
